FAERS Safety Report 16988832 (Version 1)
Quarter: 2019Q4

REPORT INFORMATION
  Report Type: Report from Study
  Country: CO (occurrence: CO)
  Receive Date: 20191104
  Receipt Date: 20191104
  Transmission Date: 20200122
  Serious: Yes (Hospitalization, Other)
  Sender: FDA-Public Use
  Company Number: CO-ASTELLAS-2018US039487

PATIENT
  Age: 47 Year
  Sex: Male

DRUGS (6)
  1. MINOXIDIL. [Suspect]
     Active Substance: MINOXIDIL
     Indication: HYPERTENSION
     Dosage: 2 CAPSULES, UNKNOWN FREQ.
     Route: 048
     Dates: start: 20191019, end: 20191026
  2. LOSARTAN. [Concomitant]
     Active Substance: LOSARTAN
     Indication: HYPERTENSION
     Dosage: 100 MG, ONCE DAILY (50MG EVERY 12 HOURS)
     Route: 048
     Dates: start: 2013
  3. LOSARTAN. [Concomitant]
     Active Substance: LOSARTAN
  4. TACROLIMUS. [Suspect]
     Active Substance: TACROLIMUS
     Indication: RENAL TRANSPLANT
     Dosage: 8 MG (1 CAPSULE OF 5MG AND 3 CAPSULES OF 1MG), ONCE DAILY
     Route: 048
     Dates: start: 20121024
  5. CLONIDINE. [Concomitant]
     Active Substance: CLONIDINE
     Indication: BLOOD PRESSURE ABNORMAL
     Dosage: 2 CAPSULES, UNKNOWN FREQ.
     Route: 048
  6. MYCOPHENOLATE [Concomitant]
     Active Substance: MYCOPHENOLIC ACID
     Indication: PRODUCT USED FOR UNKNOWN INDICATION
     Route: 048
     Dates: start: 20121024

REACTIONS (7)
  - Peripheral swelling [Not Recovered/Not Resolved]
  - Hypertensive crisis [Recovered/Resolved]
  - Urinary tract infection [Recovered/Resolved]
  - Neuropathy peripheral [Not Recovered/Not Resolved]
  - Platelet count decreased [Recovered/Resolved]
  - Acute myocardial infarction [Recovered/Resolved]
  - Haemoglobin decreased [Recovered/Resolved]

NARRATIVE: CASE EVENT DATE: 20131025
